FAERS Safety Report 10615332 (Version 1)
Quarter: 2014Q4

REPORT INFORMATION
  Report Type: Spontaneous
  Country: US (occurrence: US)
  Receive Date: 20141201
  Receipt Date: 20141201
  Transmission Date: 20150529
  Serious: No
  Sender: FDA-Public Use
  Company Number: US-PFIZER INC-2014322513

PATIENT
  Age: 15 Month
  Sex: Male
  Weight: 11 kg

DRUGS (2)
  1. PREDNISOLONE. [Concomitant]
     Active Substance: PREDNISOLONE
     Dosage: 3ML (15MG/5ML), TWICE A DAY
     Route: 048
  2. CHILDRENS ADVIL [Suspect]
     Active Substance: IBUPROFEN
     Indication: COUGH
     Dosage: 5 ML (OR 1 TEASPOON), EVERY 8 HOURS
     Route: 048
     Dates: start: 20141119

REACTIONS (4)
  - Drug administered to patient of inappropriate age [Unknown]
  - Drug ineffective for unapproved indication [Unknown]
  - Epistaxis [Unknown]
  - Sneezing [Unknown]

NARRATIVE: CASE EVENT DATE: 201411
